FAERS Safety Report 14750872 (Version 1)
Quarter: 2018Q2

REPORT INFORMATION
  Report Type: Spontaneous
  Country: US (occurrence: US)
  Receive Date: 20180406
  Receipt Date: 20180406
  Transmission Date: 20180711
  Serious: Yes (Other)
  Sender: FDA-Public Use
  Company Number: None

PATIENT
  Age: 60 Year
  Sex: Female

DRUGS (13)
  1. CRANBERRY. [Concomitant]
     Active Substance: CRANBERRY
  2. VITAMIN K2 [Concomitant]
     Active Substance: MENAQUINONE 6
  3. BALSALAZIDE [Concomitant]
     Active Substance: BALSALAZIDE
  4. CLARITIN [Concomitant]
     Active Substance: LORATADINE
  5. MULTI VITAMIN [Concomitant]
     Active Substance: VITAMINS
  6. FISH OIL [Concomitant]
     Active Substance: FISH OIL
  7. PREMARIN [Concomitant]
     Active Substance: ESTROGENS, CONJUGATED
  8. DOXYCYCL HYC [Concomitant]
  9. COLCHICINE. [Concomitant]
     Active Substance: COLCHICINE
  10. URSODIOL. [Concomitant]
     Active Substance: URSODIOL
  11. OCALIVA [Suspect]
     Active Substance: OBETICHOLIC ACID
     Indication: PRIMARY BILIARY CHOLANGITIS
     Route: 048
  12. CENTRUM [Concomitant]
     Active Substance: VITAMINS
  13. VITAMIN D3 [Concomitant]
     Active Substance: CHOLECALCIFEROL

REACTIONS (2)
  - Dry skin [None]
  - Pruritus [None]
